FAERS Safety Report 14622176 (Version 1)
Quarter: 2018Q1

REPORT INFORMATION
  Report Type: Spontaneous
  Country: US (occurrence: US)
  Receive Date: 20180311
  Receipt Date: 20180311
  Transmission Date: 20180509
  Serious: No
  Sender: FDA-Public Use
  Company Number: US-JNJFOC-20180231588

PATIENT
  Sex: Male

DRUGS (3)
  1. IMODIUM [Suspect]
     Active Substance: LOPERAMIDE HYDROCHLORIDE
     Indication: PRODUCT USED FOR UNKNOWN INDICATION
     Route: 048
     Dates: start: 19920602, end: 19920602
  2. IMODIUM [Suspect]
     Active Substance: LOPERAMIDE HYDROCHLORIDE
     Route: 048
  3. PHLOROGLUCINOL [Concomitant]
     Active Substance: PHLOROGLUCINOL
     Route: 065

REACTIONS (7)
  - Syncope [Unknown]
  - Hyperthermia [Unknown]
  - Chills [Unknown]
  - Cyanosis [Unknown]
  - Dyspnoea [Unknown]
  - Anxiety [Unknown]
  - Hypotension [Unknown]

NARRATIVE: CASE EVENT DATE: 19920602
